FAERS Safety Report 18322104 (Version 2)
Quarter: 2021Q1

REPORT INFORMATION
  Report Type: Spontaneous
  Country: US (occurrence: US)
  Receive Date: 20200929
  Receipt Date: 20210106
  Transmission Date: 20210419
  Serious: Yes (Disabling, Other)
  Sender: FDA-Public Use
  Company Number: US-REGENERON PHARMACEUTICALS, INC.-2020-77659

PATIENT

DRUGS (3)
  1. EYLEA [Suspect]
     Active Substance: AFLIBERCEPT
     Dosage: 2 MG, OCCASIONALLY
     Route: 031
     Dates: start: 2015, end: 2019
  2. EYLEA [Suspect]
     Active Substance: AFLIBERCEPT
     Dosage: 2 MG, OS
     Route: 031
     Dates: start: 20200713, end: 20200713
  3. EYLEA [Suspect]
     Active Substance: AFLIBERCEPT
     Indication: AGE-RELATED MACULAR DEGENERATION
     Dosage: 2 MG, Q4W, OD
     Route: 031
     Dates: start: 20150211, end: 20151208

REACTIONS (6)
  - Blindness [Not Recovered/Not Resolved]
  - Drug ineffective [Unknown]
  - Eye pain [Unknown]
  - Hypoacusis [Unknown]
  - Lacrimation increased [Not Recovered/Not Resolved]
  - Quadrantanopia [Unknown]

NARRATIVE: CASE EVENT DATE: 20201026
